FAERS Safety Report 5013190-7 (Version None)
Quarter: 2006Q2

REPORT INFORMATION
  Report Type: 
  Country: None (occurrence: None)
  Receive Date: 20060530
  Receipt Date: 20060316
  Transmission Date: 20061013
  Serious: No
  Sender: FDA-Public Use
  Company Number: US-GLAXOSMITHKLINE-A0597869A

PATIENT
  Age: 71 Year
  Sex: Female

DRUGS (7)
  1. WELLBUTRIN XL [Suspect]
     Indication: DEPRESSION
     Dosage: 450MG PER DAY
     Route: 048
  2. LOPRESSOR [Concomitant]
  3. LIPITOR [Concomitant]
  4. SEROQUEL [Concomitant]
  5. ASPIRIN [Concomitant]
  6. NAPROSYN [Concomitant]
  7. ZESTORETIC [Concomitant]

REACTIONS (1)
  - ALOPECIA [None]
